FAERS Safety Report 16266130 (Version 4)
Quarter: 2019Q3

REPORT INFORMATION
  Report Type: Report from Study
  Country: US (occurrence: US)
  Receive Date: 20190502
  Receipt Date: 20190704
  Transmission Date: 20191004
  Serious: Yes (Hospitalization)
  Sender: FDA-Public Use
  Company Number: US-B.I. PHARMACEUTICALS,INC./RIDGEFIELD-2019-BI-013845

PATIENT
  Age: 64 Year
  Sex: Male

DRUGS (2)
  1. STIOLTO RESPIMAT [Suspect]
     Active Substance: OLODATEROL HYDROCHLORIDE\TIOTROPIUM BROMIDE MONOHYDRATE
     Indication: PRODUCT USED FOR UNKNOWN INDICATION
     Dosage: 2 INHALATIONS ONCE A DAY
     Route: 055
     Dates: start: 2018
  2. OFEV [Suspect]
     Active Substance: NINTEDANIB
     Indication: IDIOPATHIC PULMONARY FIBROSIS
     Route: 048
     Dates: start: 20180218

REACTIONS (13)
  - Pneumonia [Recovered/Resolved]
  - Pneumonia [Recovered/Resolved]
  - Dyspnoea [Unknown]
  - Influenza [Recovered/Resolved]
  - Influenza [Recovered/Resolved]
  - Cough [Unknown]
  - Anxiety [Unknown]
  - Diarrhoea [Not Recovered/Not Resolved]
  - Productive cough [Unknown]
  - Diverticulitis [Unknown]
  - Dyspnoea [Recovered/Resolved]
  - Abdominal pain upper [Unknown]
  - Paranasal sinus hypersecretion [Unknown]

NARRATIVE: CASE EVENT DATE: 20190126
